FAERS Safety Report 7846797-X (Version None)
Quarter: 2011Q4

REPORT INFORMATION
  Report Type: 
  Country: None (occurrence: None)
  Receive Date: 20111025
  Receipt Date: 20111019
  Transmission Date: 20120403
  Serious: Yes (Death, Hospitalization)
  Sender: FDA-Public Use
  Company Number: PHEH2011US07337

PATIENT
  Sex: Female

DRUGS (11)
  1. NORVASC [Concomitant]
  2. POTASSIUM CHLORIDE [Concomitant]
  3. FENOFIBRATE [Concomitant]
  4. LEVETIRACETAM [Concomitant]
  5. EXELON [Suspect]
     Dosage: 1.5 MG, DAILY
  6. PAXIL [Concomitant]
  7. LANOXIN [Concomitant]
  8. PROTONIX [Concomitant]
  9. ALPRAZOLAM [Concomitant]
  10. VESICARE [Concomitant]
  11. NAMENDA [Concomitant]

REACTIONS (2)
  - FALL [None]
  - DEATH [None]
